FAERS Safety Report 22037993 (Version 3)
Quarter: 2023Q2

REPORT INFORMATION
  Report Type: Report from Study
  Country: US (occurrence: US)
  Receive Date: 20230227
  Receipt Date: 20230621
  Transmission Date: 20230721
  Serious: Yes (Other)
  Sender: FDA-Public Use
  Company Number: US-ABBVIE-4318485

PATIENT
  Sex: Female

DRUGS (2)
  1. HUMIRA [Suspect]
     Active Substance: ADALIMUMAB
     Indication: Rheumatoid arthritis
     Route: 058
     Dates: start: 20200618
  2. HUMIRA [Suspect]
     Active Substance: ADALIMUMAB
     Route: 058
     Dates: end: 202303

REACTIONS (12)
  - Foot deformity [Recovering/Resolving]
  - Arthralgia [Recovering/Resolving]
  - Pain in extremity [Recovering/Resolving]
  - Foot deformity [Recovering/Resolving]
  - Illness [Recovering/Resolving]
  - Psoriasis [Unknown]
  - Sinusitis [Recovering/Resolving]
  - Therapeutic product effect decreased [Unknown]
  - Ear infection [Recovering/Resolving]
  - Impaired healing [Unknown]
  - Pain in extremity [Recovered/Resolved]
  - Joint injury [Unknown]

NARRATIVE: CASE EVENT DATE: 20220101
